FAERS Safety Report 23907694 (Version 2)
Quarter: 2024Q2

REPORT INFORMATION
  Report Type: Spontaneous
  Country: US (occurrence: US)
  Receive Date: 20240528
  Receipt Date: 20240620
  Transmission Date: 20240716
  Serious: No
  Sender: FDA-Public Use
  Company Number: US-GILEAD-2024-0673957

PATIENT
  Age: 72 Year
  Sex: Female

DRUGS (2)
  1. TRODELVY [Suspect]
     Active Substance: SACITUZUMAB GOVITECAN-HZIY
     Indication: Triple negative breast cancer
     Dosage: UNK
     Route: 065
     Dates: start: 202405
  2. TRODELVY [Suspect]
     Active Substance: SACITUZUMAB GOVITECAN-HZIY
     Indication: Inflammatory carcinoma of the breast
     Dosage: UNK
     Route: 065
     Dates: start: 20240604

REACTIONS (2)
  - Alopecia [Unknown]
  - Phlebitis [Unknown]

NARRATIVE: CASE EVENT DATE: 20240501
